FAERS Safety Report 8804416 (Version 2)
Quarter: 2012Q4

REPORT INFORMATION
  Report Type: 
  Country: US (occurrence: US)
  Receive Date: 20120924
  Receipt Date: 20121226
  Transmission Date: 20130627
  Serious: Yes (Hospitalization)
  Sender: FDA-Public Use
  Company Number: US-BAYER-2012-097974

PATIENT
  Age: 39 Year
  Sex: Female

DRUGS (4)
  1. YAZ [Suspect]
  2. YASMIN [Suspect]
  3. OCELLA [Suspect]
  4. PAXIL [Concomitant]

REACTIONS (3)
  - Injury [None]
  - Ischaemic stroke [None]
  - Transient ischaemic attack [None]
